FAERS Safety Report 5706262-2 (Version None)
Quarter: 2008Q2

REPORT INFORMATION
  Report Type: 
  Country: None (occurrence: None)
  Receive Date: 20080415
  Receipt Date: 20080404
  Transmission Date: 20081010
  Serious: Yes (Other)
  Sender: FDA-Public Use
  Company Number: JP-SANOFI-SYNTHELABO-A01200803896

PATIENT
  Sex: Female

DRUGS (4)
  1. ISOVORIN [Concomitant]
     Dosage: UNK
     Route: 041
     Dates: start: 20080212, end: 20080212
  2. AVASTIN [Suspect]
     Dosage: 5MG/KG IN INFUSION ON DAY 1
     Route: 041
     Dates: start: 20080212, end: 20080212
  3. ELPLAT [Suspect]
     Indication: DRUG USE FOR UNKNOWN INDICATION
     Dosage: 85MG/M2 IN INFUSION ON DAY 1
     Route: 042
     Dates: start: 20080212, end: 20080212
  4. FLUOROURACIL [Suspect]
     Dosage: UNK
     Route: 042
     Dates: start: 20080212, end: 20080212

REACTIONS (1)
  - GASTROINTESTINAL PERFORATION [None]
